FAERS Safety Report 5132420-4 (Version None)
Quarter: 2006Q4

REPORT INFORMATION
  Report Type: 
  Country: None (occurrence: None)
  Receive Date: 20061023
  Receipt Date: 20060908
  Transmission Date: 20070319
  Serious: Yes (Hospitalization)
  Sender: FDA-Public Use
  Company Number: US-BRISTOL-MYERS SQUIBB COMPANY-13502935

PATIENT
  Age: 47 Year
  Sex: Female
  Weight: 92 kg

DRUGS (2)
  1. ORENCIA [Suspect]
     Indication: RHEUMATOID ARTHRITIS
     Route: 042
     Dates: start: 20060621
  2. METHOTREXATE SODIUM [Concomitant]

REACTIONS (1)
  - MENINGITIS ASEPTIC [None]
